FAERS Safety Report 6854180-9 (Version None)
Quarter: 2010Q3

REPORT INFORMATION
  Report Type: 
  Country: None (occurrence: None)
  Receive Date: 20100717
  Receipt Date: 20071227
  Transmission Date: 20110219
  Serious: No
  Sender: FDA-Public Use
  Company Number: US-PFIZER INC-2008000821

PATIENT
  Sex: Female
  Weight: 53.636 kg

DRUGS (3)
  1. CHANTIX [Suspect]
     Indication: SMOKING CESSATION THERAPY
     Dates: start: 20071101
  2. NORVASC [Concomitant]
     Indication: HYPERTENSION
  3. WELLBUTRIN XL [Concomitant]

REACTIONS (3)
  - MEDICATION ERROR [None]
  - NIGHTMARE [None]
  - UNEVALUABLE EVENT [None]
